FAERS Safety Report 6620556-8 (Version None)
Quarter: 2010Q1

REPORT INFORMATION
  Report Type: 
  Country: None (occurrence: None)
  Receive Date: 20100309
  Receipt Date: 20100226
  Transmission Date: 20100710
  Serious: Yes (Other)
  Sender: FDA-Public Use
  Company Number: AU-ALLERGAN-1002515US

PATIENT
  Age: 40 Year
  Sex: Female

DRUGS (1)
  1. BOTOX [Suspect]
     Indication: SKIN WRINKLING
     Dosage: 50 UNITS, SINGLE
     Route: 030
     Dates: start: 20091226, end: 20091226

REACTIONS (4)
  - CONTUSION [None]
  - FACIAL PARESIS [None]
  - HEADACHE [None]
  - VOMITING [None]
